FAERS Safety Report 21657753 (Version 1)
Quarter: 2022Q4

REPORT INFORMATION
  Report Type: Spontaneous
  Country: FR (occurrence: FR)
  Receive Date: 20221129
  Receipt Date: 20221129
  Transmission Date: 20230112
  Serious: Yes (Other)
  Sender: FDA-Public Use
  Company Number: FR-TEVA-2022-FR-2075102

PATIENT
  Age: 42 Year
  Sex: Male

DRUGS (4)
  1. TRAMADOL [Suspect]
     Active Substance: TRAMADOL
     Indication: Migraine
     Dosage: 30 TABLETS, QD
     Route: 065
  2. TRAMADOL [Suspect]
     Active Substance: TRAMADOL
     Dosage: 1 OR 2 TABLETS THREE TIMES
     Route: 065
  3. TRAMADOL [Suspect]
     Active Substance: TRAMADOL
     Dosage: 15  TABLETS, QD
     Route: 065
     Dates: start: 2014
  4. CODEINE [Concomitant]
     Active Substance: CODEINE
     Indication: Migraine
     Dosage: UNK
     Route: 065

REACTIONS (6)
  - Drug dependence [Unknown]
  - Product use in unapproved indication [Unknown]
  - Prescription form tampering [Unknown]
  - Sleep disorder [Unknown]
  - Memory impairment [Unknown]
  - Intentional overdose [Unknown]
